FAERS Safety Report 20437222 (Version 1)
Quarter: 2022Q1

REPORT INFORMATION
  Report Type: Report from Study
  Country: US (occurrence: US)
  Receive Date: 20220207
  Receipt Date: 20220207
  Transmission Date: 20220423
  Serious: Yes (Hospitalization, Other)
  Sender: FDA-Public Use
  Company Number: US-GSKCCFUS-Case-01284544_AE-74942

PATIENT
  Age: 44 Year
  Sex: Female

DRUGS (3)
  1. BELIMUMAB [Suspect]
     Active Substance: BELIMUMAB
     Indication: Lupus nephritis
     Dosage: UNK
     Dates: start: 2020
  2. ELIQUIS [Suspect]
     Active Substance: APIXABAN
     Indication: Product used for unknown indication
     Dosage: UNK
  3. LOVENOX [Suspect]
     Active Substance: ENOXAPARIN SODIUM
     Indication: Product used for unknown indication
     Dosage: UNK

REACTIONS (10)
  - Pneumonia [Recovered/Resolved]
  - Bronchitis [Recovered/Resolved]
  - Coronavirus infection [Recovered/Resolved]
  - Pulmonary embolism [Not Recovered/Not Resolved]
  - Renal impairment [Recovered/Resolved]
  - Hormone level abnormal [Unknown]
  - Fatigue [Not Recovered/Not Resolved]
  - Dyspnoea [Not Recovered/Not Resolved]
  - Pain [Not Recovered/Not Resolved]
  - Exposure during pregnancy [Not Recovered/Not Resolved]

NARRATIVE: CASE EVENT DATE: 20211223
